FAERS Safety Report 5218999-2 (Version None)
Quarter: 2007Q1

REPORT INFORMATION
  Report Type: 
  Country: None (occurrence: None)
  Receive Date: 20070125
  Receipt Date: 20070116
  Transmission Date: 20070707
  Serious: Yes (Disabling)
  Sender: FDA-Public Use
  Company Number: NZ-ROCHE-478598

PATIENT
  Age: 27 Year
  Sex: Female
  Weight: 80 kg

DRUGS (1)
  1. XENICAL [Suspect]
     Indication: DRUG USE FOR UNKNOWN INDICATION
     Route: 048
     Dates: start: 20070111, end: 20070113

REACTIONS (1)
  - MIGRAINE [None]
